FAERS Safety Report 6139003-8 (Version None)
Quarter: 2009Q1

REPORT INFORMATION
  Report Type: 
  Country: None (occurrence: None)
  Receive Date: 20090327
  Receipt Date: 20090316
  Transmission Date: 20090719
  Serious: No
  Sender: FDA-Public Use
  Company Number: 2009-191630-NL

PATIENT
  Age: 41 Year
  Sex: Female

DRUGS (1)
  1. NUVARING [Suspect]
     Dosage: DF
     Dates: start: 20061001

REACTIONS (9)
  - BLOOD PRESSURE INCREASED [None]
  - CERVIX DISORDER [None]
  - INSOMNIA [None]
  - MENORRHAGIA [None]
  - RASH GENERALISED [None]
  - TREATMENT NONCOMPLIANCE [None]
  - URTICARIA [None]
  - UTERINE DISORDER [None]
  - WEIGHT INCREASED [None]
